FAERS Safety Report 7475744-8 (Version None)
Quarter: 2011Q2

REPORT INFORMATION
  Report Type: 
  Country: None (occurrence: None)
  Receive Date: 20110510
  Receipt Date: 20110510
  Transmission Date: 20111010
  Serious: Yes (Hospitalization)
  Sender: FDA-Public Use
  Company Number: None

PATIENT
  Age: 14 Month
  Sex: Male
  Weight: 11.8 kg

DRUGS (2)
  1. DEXMEDETOMIDINE HYDROCHLORIDE [Suspect]
     Indication: ENDOTRACHEAL INTUBATION
     Dosage: 1.4MCG/KG/HOUR CONTINUOUS INFUSION IV DRIP
     Route: 041
     Dates: start: 20110321, end: 20110326
  2. DEXMEDETOMIDINE HYDROCHLORIDE [Suspect]
     Indication: SEDATION
     Dosage: 1.4MCG/KG/HOUR CONTINUOUS INFUSION IV DRIP
     Route: 041
     Dates: start: 20110321, end: 20110326

REACTIONS (6)
  - CHOREOATHETOSIS [None]
  - HYPOTONIA [None]
  - STARING [None]
  - TARDIVE DYSKINESIA [None]
  - EYE DISORDER [None]
  - ENCEPHALOPATHY [None]
